FAERS Safety Report 4463168-7 (Version None)
Quarter: 2004Q3

REPORT INFORMATION
  Report Type: 
  Country: None (occurrence: None)
  Receive Date: 20040928
  Receipt Date: 20040915
  Transmission Date: 20050211
  Serious: Yes (Hospitalization)
  Sender: FDA-Public Use
  Company Number: 2004AP04865

PATIENT
  Age: 48 Year
  Sex: Female

DRUGS (7)
  1. ZOMIG [Suspect]
     Indication: MIGRAINE
     Dates: start: 20010701, end: 20030819
  2. LOCHOL [Concomitant]
  3. LIPITOR [Concomitant]
  4. HALCION [Concomitant]
  5. VOLTAREN [Concomitant]
  6. MIGSIS [Concomitant]
  7. ASPIRIN [Concomitant]

REACTIONS (3)
  - CONJUNCTIVAL HAEMORRHAGE [None]
  - OESOPHAGEAL HAEMORRHAGE [None]
  - OVARIAN HAEMATOMA [None]
